FAERS Safety Report 4481759-4 (Version None)
Quarter: 2004Q4

REPORT INFORMATION
  Report Type: 
  Country: None (occurrence: None)
  Receive Date: 20041021
  Receipt Date: 20041012
  Transmission Date: 20050328
  Serious: Yes (Hospitalization)
  Sender: FDA-Public Use
  Company Number: GB-MERCK-0410GBR00135

PATIENT
  Age: 84 Year
  Sex: Female

DRUGS (5)
  1. ZOCOR [Suspect]
     Indication: CARDIOVASCULAR DISORDER
     Route: 048
     Dates: start: 20040917, end: 20040922
  2. ASPIRIN [Concomitant]
     Indication: PROPHYLAXIS
     Route: 048
     Dates: start: 20000101
  3. VASOTEC [Concomitant]
     Indication: BLOOD PRESSURE INCREASED
     Route: 048
     Dates: start: 20040310
  4. FUROSEMIDE [Concomitant]
     Indication: LEFT VENTRICULAR FAILURE
     Route: 048
     Dates: start: 19990101
  5. ACETAMINOPHEN [Concomitant]
     Indication: GOUT
     Route: 048
     Dates: start: 20020703

REACTIONS (2)
  - ANAEMIA [None]
  - MELAENA [None]
